FAERS Safety Report 4806415-1 (Version None)
Quarter: 2005Q4

REPORT INFORMATION
  Report Type: 
  Country: None (occurrence: None)
  Receive Date: 20051019
  Receipt Date: 20051012
  Transmission Date: 20060501
  Serious: Yes (Other)
  Sender: FDA-Public Use
  Company Number: 2005136407

PATIENT
  Age: 47 Year
  Sex: Male
  Weight: 96.6162 kg

DRUGS (4)
  1. ZITHROMAX [Suspect]
     Indication: PNEUMONIA
     Dosage: 2 GRAM (2 GRAM ONCE), ORAL
     Route: 048
     Dates: start: 20050926, end: 20050926
  2. DEPAKOTE (VALPROATE) [Concomitant]
  3. MELLARIL [Concomitant]
  4. DOXEPIN HCL [Concomitant]

REACTIONS (5)
  - CHEST PAIN [None]
  - DRUG INEFFECTIVE [None]
  - DYSPNOEA [None]
  - HEADACHE [None]
  - REGURGITATION OF FOOD [None]
